FAERS Safety Report 8341164-7 (Version None)
Quarter: 2012Q2

REPORT INFORMATION
  Report Type: 
  Country: None (occurrence: None)
  Receive Date: 20120507
  Receipt Date: 20120504
  Transmission Date: 20120825
  Serious: No
  Sender: FDA-Public Use
  Company Number: US-PFIZER INC-2012110346

PATIENT
  Sex: Male
  Weight: 86.2 kg

DRUGS (3)
  1. CHANTIX [Suspect]
     Dosage: 0.5 MG, 2X/DAY
     Route: 048
     Dates: start: 20120101
  2. CHANTIX [Suspect]
     Indication: SMOKING CESSATION THERAPY
     Dosage: 0.5 MG, 1X/DAY
     Route: 048
     Dates: start: 20120427, end: 20120101
  3. SYMBICORT [Concomitant]
     Dosage: UNK

REACTIONS (4)
  - CHILLS [None]
  - RESTLESSNESS [None]
  - MIDDLE INSOMNIA [None]
  - HYPERHIDROSIS [None]
